FAERS Safety Report 17138170 (Version 1)
Quarter: 2019Q4

REPORT INFORMATION
  Report Type: Spontaneous
  Country: SE (occurrence: SE)
  Receive Date: 20191211
  Receipt Date: 20191211
  Transmission Date: 20200122
  Serious: Yes (Hospitalization)
  Sender: FDA-Public Use
  Company Number: SE-TEVA-2019-SE-1148990

PATIENT
  Age: 26 Year
  Sex: Male

DRUGS (3)
  1. VENLAFAXINE [Suspect]
     Active Substance: VENLAFAXINE HYDROCHLORIDE
     Route: 048
     Dates: start: 20181125, end: 20181126
  2. THERALEN [Suspect]
     Active Substance: TRIMEPRAZINE
     Dosage: 4 GRAMS
     Route: 048
     Dates: start: 20181125, end: 20181126
  3. LERGIGAN [PROMETHAZINE HYDROCHLORIDE] [Suspect]
     Active Substance: PROMETHAZINE HYDROCHLORIDE
     Dosage: 2 GRAMS
     Route: 048
     Dates: start: 20181125, end: 20181126

REACTIONS (9)
  - Urinary retention [Unknown]
  - Intentional self-injury [Unknown]
  - Urine output increased [Unknown]
  - Tremor [Unknown]
  - Intentional overdose [Unknown]
  - Hypotension [Unknown]
  - Sinus tachycardia [Unknown]
  - Loss of consciousness [Unknown]
  - Akathisia [Unknown]

NARRATIVE: CASE EVENT DATE: 201811
